FAERS Safety Report 4865320-5 (Version None)
Quarter: 2005Q4

REPORT INFORMATION
  Report Type: 
  Country: None (occurrence: None)
  Receive Date: 20051223
  Receipt Date: 20051122
  Transmission Date: 20060501
  Serious: Yes (Other)
  Sender: FDA-Public Use
  Company Number: 2005GB02293

PATIENT
  Age: 31 Year
  Sex: Female
  Weight: 73 kg

DRUGS (2)
  1. SEROQUEL [Suspect]
     Indication: PSYCHOTIC DISORDER
     Route: 048
     Dates: start: 20051115, end: 20051101
  2. SEROQUEL [Suspect]
     Dosage: DOSE REDUCED TO 150 AM AND 175MG PM
     Route: 048
     Dates: start: 20051101

REACTIONS (1)
  - MUSCULAR WEAKNESS [None]
